FAERS Safety Report 20491115 (Version 1)
Quarter: 2022Q1

REPORT INFORMATION
  Report Type: Spontaneous
  Country: US (occurrence: None)
  Receive Date: 20220218
  Receipt Date: 20220218
  Transmission Date: 20220423
  Serious: Yes (Death)
  Sender: FDA-Public Use
  Company Number: None

PATIENT
  Sex: Male

DRUGS (11)
  1. REPATHA [Suspect]
     Active Substance: EVOLOCUMAB
     Indication: Type V hyperlipidaemia
     Route: 058
     Dates: start: 20190823
  2. ASPIRIN LOW [Concomitant]
  3. COENZYME [Concomitant]
  4. LEVEMIR INJ FLEXTOUC [Concomitant]
  5. NOVOLOG INJ FLEXPEN [Concomitant]
  6. OMEPRAZOLE TAB [Concomitant]
  7. PRESERVISION CAP AREDS 2 [Concomitant]
  8. SEREVENT DIS AER [Concomitant]
  9. SPIRIVA HANDIHALER [Concomitant]
  10. TYLENOL 8 HR TAB [Concomitant]
  11. VITAMIN D3 CAP [Concomitant]

REACTIONS (1)
  - Death [None]
